FAERS Safety Report 8525118-3 (Version None)
Quarter: 2012Q3

REPORT INFORMATION
  Report Type: 
  Country: None (occurrence: None)
  Receive Date: 20120720
  Receipt Date: 20120710
  Transmission Date: 20120928
  Serious: Yes (Other)
  Sender: FDA-Public Use
  Company Number: US-CELGENEUS-163-21880-12070908

PATIENT
  Sex: Female

DRUGS (10)
  1. CLONAZEPAM [Concomitant]
     Route: 065
  2. PROMETHAZINE [Concomitant]
     Route: 065
  3. ZOLOFT [Concomitant]
     Route: 065
  4. APAP TAB [Concomitant]
     Route: 065
  5. REVLIMID [Suspect]
     Indication: MULTIPLE MYELOMA
     Dosage: 25 MILLIGRAM
     Route: 048
     Dates: start: 20101101
  6. PROPRANOLOL [Concomitant]
     Route: 065
  7. COUMADIN [Concomitant]
     Route: 065
  8. REVLIMID [Suspect]
     Dosage: 15 MILLIGRAM
     Route: 048
     Dates: end: 20120710
  9. MIDRIN [Concomitant]
     Route: 065
  10. NUVIGIL [Concomitant]
     Route: 065

REACTIONS (1)
  - PREGNANCY TEST FALSE POSITIVE [None]
